FAERS Safety Report 20470979 (Version 1)
Quarter: 2022Q1

REPORT INFORMATION
  Report Type: Spontaneous
  Country: US (occurrence: US)
  Receive Date: 20220214
  Receipt Date: 20220214
  Transmission Date: 20220424
  Serious: No
  Sender: FDA-Public Use
  Company Number: US-TAKEDA-2022TUS009511

PATIENT
  Sex: Male

DRUGS (1)
  1. GAMMAGARD LIQUID [Suspect]
     Active Substance: HUMAN IMMUNOGLOBULIN G
     Indication: Anti-myelin-associated glycoprotein associated polyneuropathy
     Dosage: 850 MILLILITER, MONTHLY
     Route: 065

REACTIONS (2)
  - Immune system disorder [Unknown]
  - Off label use [Unknown]
